FAERS Safety Report 8884314 (Version 1)
Quarter: 2012Q4

REPORT INFORMATION
  Report Type: 
  Country: US (occurrence: US)
  Receive Date: 20121102
  Receipt Date: 20121102
  Transmission Date: 20130627
  Serious: No
  Sender: FDA-Public Use
  Company Number: US-ASTRAZENECA-2012SE21192

PATIENT
  Age: 82 Year
  Sex: Female

DRUGS (1)
  1. CRESTOR [Suspect]
     Dosage: 5 MG EVERY OTHER DAY
     Route: 048
     Dates: start: 201112

REACTIONS (4)
  - Decreased appetite [Unknown]
  - Groin pain [Unknown]
  - Muscle spasms [Unknown]
  - Off label use [Unknown]
